FAERS Safety Report 9838539 (Version 1)
Quarter: 2013Q4

REPORT INFORMATION
  Report Type: Spontaneous
  Country: US (occurrence: None)
  Receive Date: 20131206
  Receipt Date: 20131206
  Transmission Date: 20140711
  Serious: Yes (Other)
  Sender: FDA-Public Use
  Company Number: 385337

PATIENT
  Age: 65 Year
  Sex: Female
  Weight: 74.8 kg

DRUGS (14)
  1. NOVOLOG [Suspect]
     Indication: TYPE 2 DIABETES MELLITUS
     Dosage: SLIDING SCALE, SUBCUTANEOUS
     Route: 058
     Dates: start: 2010
  2. LANTUS (INSULIN GLARGINE) [Suspect]
     Dosage: 40 U QD, SUBCUTANEOUS
     Route: 058
     Dates: start: 2010
  3. METFORMIN (METFORMIN) [Concomitant]
  4. HYDREA (HYDROXYCARBAMIDE) [Concomitant]
  5. CALCIUM (CALCIUM) [Concomitant]
  6. VITAMIN D /00107901/ (ERGOCALCIFEROL) [Concomitant]
  7. CLONIDINE HCL (CLONIDINE HYYDROCHLORIDE) [Concomitant]
  8. PROPRANOLOL HCL (PROPRANOLOL HYDROCHLORIDE) [Concomitant]
  9. OMERPAZOLE (OMEPRAZOLE) [Concomitant]
  10. TRAMADOL HCL (TRAMADOL HYDROOCLORIDE) [Concomitant]
  11. LOSARTAN POTASSIUM (LOSARTAN POSTASSIUM) [Concomitant]
  12. GEMFIBROZIL (GEMFIBROZIL) [Concomitant]
  13. PREDNISONE (PREDNISONE) [Concomitant]
  14. TYLENOL WITH CODEINE (CODEINE PHOSPHATE, PARACETAMOL) [Concomitant]

REACTIONS (2)
  - Hypoglycaemic unconsciousness [None]
  - Blood glucose decreased [None]
